FAERS Safety Report 7690698-7 (Version None)
Quarter: 2011Q3

REPORT INFORMATION
  Report Type: 
  Country: None (occurrence: None)
  Receive Date: 20110818
  Receipt Date: 20110808
  Transmission Date: 20111222
  Serious: Yes (Hospitalization)
  Sender: FDA-Public Use
  Company Number: CH-BRISTOL-MYERS SQUIBB COMPANY-15952559

PATIENT
  Age: 82 Year
  Sex: Female

DRUGS (6)
  1. METOPROLOL TARTRATE [Concomitant]
  2. OLMESARTAN MEDOXOMIL [Concomitant]
  3. GABAPENTIN [Concomitant]
  4. SITAGLIPTIN PHOSPHATE [Suspect]
     Route: 048
  5. CLOPIDOGREL BISULFATE [Concomitant]
  6. METFORMIN HCL [Suspect]
     Route: 048

REACTIONS (1)
  - FAECAL INCONTINENCE [None]
